FAERS Safety Report 7893973-6 (Version None)
Quarter: 2011Q4

REPORT INFORMATION
  Report Type: 
  Country: None (occurrence: None)
  Receive Date: 20111104
  Receipt Date: 20111027
  Transmission Date: 20120403
  Serious: Yes (Death, Life-Threatening)
  Sender: FDA-Public Use
  Company Number: US-VERTEX PHARMACEUTICALS INC.-AE-2011-002961

PATIENT
  Sex: Male

DRUGS (4)
  1. COUMADIN [Concomitant]
  2. PEGINTERFERON ALFA-2A [Concomitant]
  3. INCIVEK [Suspect]
     Indication: HEPATITIS C
  4. RIBAVIRIN [Concomitant]

REACTIONS (1)
  - DEATH [None]
